FAERS Safety Report 9617966 (Version 1)
Quarter: 2013Q4

REPORT INFORMATION
  Report Type: Spontaneous
  Country: ES (occurrence: ES)
  Receive Date: 20131011
  Receipt Date: 20131011
  Transmission Date: 20140711
  Serious: Yes (Hospitalization)
  Sender: FDA-Public Use
  Company Number: PHHY2013ES111247

PATIENT
  Age: 87 Year
  Sex: Male

DRUGS (6)
  1. CO-VALS [Suspect]
     Indication: HYPERTENSION
     Dosage: 1 DF (VALS 160MG, HCTZ 25MG) DAILY
     Route: 048
     Dates: start: 201011, end: 20130223
  2. FUROSEMIDE [Interacting]
     Indication: OEDEMA PERIPHERAL
     Dosage: 40 MG, UNK
     Route: 048
     Dates: start: 200811, end: 20130223
  3. IBUPROFEN SANDOZ [Interacting]
     Indication: GOUT
     Dosage: 1.8 G, DAILY
     Route: 048
     Dates: start: 20130219, end: 20130223
  4. ALLOPURINOL [Interacting]
     Indication: GOUT
     Dosage: 100 MG, DAILY
     Route: 048
     Dates: start: 20130219, end: 20130223
  5. AUGMENTINE [Interacting]
     Indication: BRONCHIECTASIS
     Dosage: 1 G, TID
     Route: 048
     Dates: start: 20130126, end: 20130130
  6. ACENOCOUMAROL [Concomitant]
     Dosage: UNK UKN, UNK
     Dates: end: 20130223

REACTIONS (1)
  - Renal failure acute [Recovered/Resolved]
